FAERS Safety Report 4277811-9 (Version None)
Quarter: 2004Q1

REPORT INFORMATION
  Report Type: 
  Country: None (occurrence: None)
  Receive Date: 20040121
  Receipt Date: 20040114
  Transmission Date: 20041129
  Serious: Yes (Other)
  Sender: FDA-Public Use
  Company Number: 2003192039DE

PATIENT
  Age: 78 Year
  Sex: Female

DRUGS (8)
  1. DETRUSITOL [Suspect]
     Indication: INCONTINENCE
     Dosage: ORAL
     Route: 048
     Dates: start: 20031125, end: 20031201
  2. CO-DIOVAN [Concomitant]
  3. METOPROLOL SUCCINATE [Concomitant]
  4. FUROSEMIDE [Concomitant]
  5. CARBIMAZOLE (CARBIMAZOLE) [Concomitant]
  6. PASPERTIN [Concomitant]
  7. ALLOPURINOL [Concomitant]
  8. FLECAINIDE (FELCAINIDE) [Concomitant]

REACTIONS (4)
  - ATRIAL FIBRILLATION [None]
  - HYPERTENSIVE CRISIS [None]
  - MALAISE [None]
  - PALPITATIONS [None]
